FAERS Safety Report 4838917-6 (Version None)
Quarter: 2005Q4

REPORT INFORMATION
  Report Type: 
  Country: None (occurrence: None)
  Receive Date: 20051129
  Receipt Date: 20050912
  Transmission Date: 20060501
  Serious: Yes (Hospitalization, Other)
  Sender: FDA-Public Use
  Company Number: US-GLAXOSMITHKLINE-A0573866A

PATIENT
  Age: 35 Year
  Sex: Male
  Weight: 73.6 kg

DRUGS (2)
  1. EPZICOM [Suspect]
     Indication: HIV INFECTION
     Dosage: 600MG PER DAY
     Route: 048
     Dates: start: 20050602, end: 20050912
  2. VIRAMUNE [Concomitant]

REACTIONS (1)
  - HYPERSENSITIVITY [None]
